FAERS Safety Report 19229983 (Version 1)
Quarter: 2021Q2

REPORT INFORMATION
  Report Type: Spontaneous
  Country: IT (occurrence: IT)
  Receive Date: 20210506
  Receipt Date: 20210506
  Transmission Date: 20210717
  Serious: Yes (Hospitalization, Other)
  Sender: FDA-Public Use
  Company Number: IT-ASTRAZENECA-2021A369602

PATIENT
  Age: 55 Year
  Sex: Male

DRUGS (3)
  1. QUETIAPINE. [Suspect]
     Active Substance: QUETIAPINE
     Indication: PRODUCT USED FOR UNKNOWN INDICATION
     Dosage: 10 TABLETS: 300 MILLIGRAMS
     Route: 048
  2. LITHIOFOR [Suspect]
     Active Substance: LITHIUM SULFATE
     Indication: BIPOLAR DISORDER
     Dosage: 10 TABLETS: 166 MILLIGRAMS DAILY
     Route: 048
  3. LORAZEPAM. [Suspect]
     Active Substance: LORAZEPAM
     Indication: PRODUCT USED FOR UNKNOWN INDICATION
     Dosage: 2.5MG UNKNOWN
     Route: 065

REACTIONS (4)
  - Toxicity to various agents [Recovered/Resolved]
  - Sopor [Recovered/Resolved]
  - Intentional overdose [Recovered/Resolved]
  - Drug abuse [Recovered/Resolved]
